FAERS Safety Report 5627075-6 (Version None)
Quarter: 2008Q1

REPORT INFORMATION
  Report Type: 
  Country: None (occurrence: None)
  Receive Date: 20080115
  Receipt Date: 20061127
  Transmission Date: 20080703
  Serious: Yes (Other)
  Sender: FDA-Public Use
  Company Number: 2006VX002358

PATIENT
  Sex: Female

DRUGS (3)
  1. ZELAPAR [Suspect]
     Indication: PARKINSON'S DISEASE
     Dosage: PO
     Route: 048
  2. L-DOPA [Concomitant]
  3. MIRAPEX [Concomitant]

REACTIONS (1)
  - HALLUCINATION, AUDITORY [None]
